FAERS Safety Report 11964846 (Version 3)
Quarter: 2017Q1

REPORT INFORMATION
  Report Type: Spontaneous
  Country: JP (occurrence: JP)
  Receive Date: 20160127
  Receipt Date: 20170125
  Transmission Date: 20170428
  Serious: Yes (Other)
  Sender: FDA-Public Use
  Company Number: JP-SUN PHARMACEUTICAL INDUSTRIES LTD-2016R1-110105

PATIENT
  Age: 56 Year
  Sex: Female

DRUGS (14)
  1. IRINOTECAN [Suspect]
     Active Substance: IRINOTECAN
     Indication: GASTRIC CANCER STAGE III
     Dosage: 60 MG/BODY DAY 1, 15/Q4 WKS
     Route: 042
  2. IRINOTECAN [Suspect]
     Active Substance: IRINOTECAN
     Dosage: 120 MG/M2 DAY 1, 15/Q4WKS
     Route: 042
  3. DOCETAXEL. [Suspect]
     Active Substance: DOCETAXEL
     Dosage: 60 MG/M2  DAY 1/Q3WKS
     Route: 042
  4. PACLITAXEL. [Suspect]
     Active Substance: PACLITAXEL
     Indication: GASTRIC CANCER STAGE III
     Dosage: 60 MG/M2 DAY 1,8 15/Q4WKS
     Route: 042
  5. PACLITAXEL. [Suspect]
     Active Substance: PACLITAXEL
     Dosage: 10 MG/M2 DAY 1, 8, 15/Q4WKS
     Route: 033
  6. PACLITAXEL. [Suspect]
     Active Substance: PACLITAXEL
     Dosage: 70 MG/M2 DAY 1, 8, 15/Q4WKS
     Route: 042
  7. CISPLATIN. [Suspect]
     Active Substance: CISPLATIN
     Indication: GASTRIC CANCER STAGE III
     Dosage: 80 MG/M2 DIV DAY 1/Q3WKS
     Route: 042
  8. DOCETAXEL. [Suspect]
     Active Substance: DOCETAXEL
     Indication: GASTRIC CANCER STAGE III
     Dosage: 40 MG/BODY DAY 1, 15/Q4 WKS
     Route: 033
  9. POLYSACCHARIDE-KUREHA [Suspect]
     Active Substance: POLYSACCHARIDE-K
     Indication: GASTRIC CANCER STAGE III
     Dosage: 3G/BODY, DAY 1-28
     Route: 033
  10. XELODA [Suspect]
     Active Substance: CAPECITABINE
     Indication: GASTRIC CANCER STAGE III
     Dosage: 2,400 MG/BODY DAY 1-14
     Route: 042
  11. PACLITAXEL. [Suspect]
     Active Substance: PACLITAXEL
     Dosage: 50 MG/M2 DAY 1, 8, 15/Q4WKS
     Route: 042
  12. PACLITAXEL. [Suspect]
     Active Substance: PACLITAXEL
     Dosage: 20 MG/50ML DAY 1, 15/Q4WKS
     Route: 033
  13. TS-1 [Suspect]
     Active Substance: GIMERACIL\OTERACIL\TEGAFUR
     Indication: GASTRIC CANCER STAGE III
     Dosage: 80 MG/BODY: DAY 1-14
     Route: 033
  14. TS-1 [Suspect]
     Active Substance: GIMERACIL\OTERACIL\TEGAFUR
     Dosage: 80MG/BODY DAY 1-28
     Route: 048

REACTIONS (3)
  - Disease progression [Recovered/Resolved]
  - Disease recurrence [Recovered/Resolved]
  - Drug resistance [Unknown]
